FAERS Safety Report 6339586-9 (Version None)
Quarter: 2009Q3

REPORT INFORMATION
  Report Type: 
  Country: None (occurrence: None)
  Receive Date: 20090903
  Receipt Date: 20090827
  Transmission Date: 20100115
  Serious: Yes (Other)
  Sender: FDA-Public Use
  Company Number: AU-ABBOTT-08P-008-0471814-00

PATIENT
  Sex: Female
  Weight: 70 kg

DRUGS (3)
  1. HUMIRA [Suspect]
     Indication: CROHN'S DISEASE
     Route: 058
     Dates: start: 20080303, end: 20080811
  2. HUMIRA [Suspect]
  3. METHOTREXATE [Concomitant]
     Indication: DRUG USE FOR UNKNOWN INDICATION

REACTIONS (7)
  - ANTINUCLEAR ANTIBODY INCREASED [None]
  - C-REACTIVE PROTEIN INCREASED [None]
  - DOUBLE STRANDED DNA ANTIBODY [None]
  - HISTONE ANTIBODY POSITIVE [None]
  - LUPUS-LIKE SYNDROME [None]
  - POLYARTHRITIS [None]
  - RHEUMATOID FACTOR POSITIVE [None]
